FAERS Safety Report 7670231-6 (Version None)
Quarter: 2011Q3

REPORT INFORMATION
  Report Type: 
  Country: None (occurrence: None)
  Receive Date: 20110808
  Receipt Date: 20110616
  Transmission Date: 20111222
  Serious: No
  Sender: FDA-Public Use
  Company Number: US-BAYER-2011-053140

PATIENT
  Age: 82 Year
  Sex: Female
  Weight: 59 kg

DRUGS (3)
  1. ALEVE [Suspect]
     Indication: TOOTHACHE
     Dosage: 1 DF, TID
     Route: 048
     Dates: start: 20110615, end: 20110615
  2. ANTIHYPERTENSIVES [Concomitant]
  3. ASPIRIN [Concomitant]
     Indication: ISCHAEMIC HEART DISEASE PROPHYLAXIS
     Dosage: 325 MG, UNK

REACTIONS (1)
  - RASH MACULAR [None]
